FAERS Safety Report 22041166 (Version 5)
Quarter: 2025Q3

REPORT INFORMATION
  Report Type: Report from Study
  Country: CH (occurrence: CH)
  Receive Date: 20230227
  Receipt Date: 20250825
  Transmission Date: 20251020
  Serious: Yes (Death, Other)
  Sender: ABBVIE
  Company Number: CH-ABBVIE-4238908

PATIENT
  Age: 90 Year
  Sex: Male
  Weight: 74 kg

DRUGS (23)
  1. VENETOCLAX [Suspect]
     Active Substance: VENETOCLAX
     Indication: Acute myeloid leukaemia
     Route: 048
     Dates: start: 20220905, end: 20220918
  2. VENETOCLAX [Suspect]
     Active Substance: VENETOCLAX
     Indication: Acute myeloid leukaemia
     Route: 048
     Dates: start: 20220919, end: 20230115
  3. DAFALGAN [Concomitant]
     Active Substance: ACETAMINOPHEN
     Indication: Product used for unknown indication
     Route: 048
     Dates: start: 20221001
  4. ONDANSETRON [Concomitant]
     Active Substance: ONDANSETRON
     Indication: Product used for unknown indication
     Dosage: ONDANSETRONI HYDROCHLORIDUM DIHYDRICUM (ONDANSETRON)
     Dates: start: 20220905, end: 20220908
  5. CEFEPIME [Concomitant]
     Active Substance: CEFEPIME HYDROCHLORIDE
     Indication: Product used for unknown indication
     Dosage: CEFEPIMUM UT CEFEPIMI DIHYDROCHLORIDUM MONOHYDRICUM	(CEFEPIM)
     Route: 042
     Dates: start: 20220906, end: 20220906
  6. CEFEPIME [Concomitant]
     Active Substance: CEFEPIME HYDROCHLORIDE
     Indication: Product used for unknown indication
     Dosage: CEFEPIMUM UT CEFEPIMI DIHYDROCHLORIDUM MONOHYDRICUM	(CEFEPIM)
     Route: 048
     Dates: start: 20220907, end: 20220908
  7. AMLODIPINE [Concomitant]
     Active Substance: AMLODIPINE BESYLATE
     Indication: Product used for unknown indication
     Dosage: AMLODIPINUM (AMLODIPIN)
     Route: 048
     Dates: start: 20180101
  8. ENOXAPARIN SODIUM [Concomitant]
     Active Substance: ENOXAPARIN SODIUM
     Indication: Product used for unknown indication
     Dosage: ENOXAPARIN NATRIUM	(CLEXANE)
     Route: 058
     Dates: start: 20220902, end: 20220905
  9. BETAHISTINE [Concomitant]
     Active Substance: BETAHISTINE
     Indication: Product used for unknown indication
     Route: 048
     Dates: start: 20220901
  10. ESOMEPRAZOLE [Concomitant]
     Active Substance: ESOMEPRAZOLE
     Indication: Product used for unknown indication
     Dosage: ESOMEPRAZOL	NEXIUM (MUPS)
     Route: 048
     Dates: start: 20220905
  11. NOXAFIL [Concomitant]
     Active Substance: POSACONAZOLE
     Indication: Product used for unknown indication
     Dosage: POSACONAZOL (NOXAFIL)
     Route: 048
     Dates: start: 20220908, end: 20220929
  12. LISINOPRIL [Concomitant]
     Active Substance: LISINOPRIL
     Indication: Product used for unknown indication
     Dosage: LISINOPRILUM (LISINOPRIL)
     Route: 048
  13. LASIX [Concomitant]
     Active Substance: FUROSEMIDE
     Indication: Product used for unknown indication
     Route: 042
     Dates: start: 20220902
  14. XARELTO [Concomitant]
     Active Substance: RIVAROXABAN
     Indication: Product used for unknown indication
     Dosage: RIVAROXABAN	(XARELTO)
     Route: 048
     Dates: start: 20180101
  15. VALTREX [Concomitant]
     Active Substance: VALACYCLOVIR HYDROCHLORIDE
     Indication: Product used for unknown indication
     Dosage: VALACICLOVIR  (VALTREX)
     Route: 048
     Dates: start: 20220902
  16. AZACITIDINE [Suspect]
     Active Substance: AZACITIDINE
     Indication: Acute myeloid leukaemia
     Route: 065
     Dates: start: 20220907, end: 20220907
  17. AZACITIDINE [Suspect]
     Active Substance: AZACITIDINE
     Indication: Acute myeloid leukaemia
     Route: 065
     Dates: start: 20221105, end: 20221105
  18. AZACITIDINE [Suspect]
     Active Substance: AZACITIDINE
     Indication: Acute myeloid leukaemia
     Route: 065
     Dates: start: 20220906, end: 20220906
  19. AZACITIDINE [Suspect]
     Active Substance: AZACITIDINE
     Indication: Acute myeloid leukaemia
     Route: 065
     Dates: start: 20220908, end: 20220908
  20. AZACITIDINE [Suspect]
     Active Substance: AZACITIDINE
     Indication: Acute myeloid leukaemia
     Route: 065
     Dates: start: 20220909, end: 20220909
  21. FLAGYL [Concomitant]
     Active Substance: METRONIDAZOLE\METRONIDAZOLE HYDROCHLORIDE
     Indication: Product used for unknown indication
     Route: 048
     Dates: start: 20220908
  22. ATORVASTATIN [Concomitant]
     Active Substance: ATORVASTATIN
     Indication: Product used for unknown indication
     Route: 048
     Dates: start: 20180101
  23. ALLOPURINOL [Concomitant]
     Active Substance: ALLOPURINOL
     Indication: Product used for unknown indication
     Dates: start: 20220908, end: 20220910

REACTIONS (6)
  - Agranulocytosis [Fatal]
  - Tumour lysis syndrome [Recovered/Resolved]
  - Sepsis [Fatal]
  - Staphylococcal infection [Fatal]
  - Neoplasm [Fatal]
  - Disturbance in attention [Fatal]

NARRATIVE: CASE EVENT DATE: 20220905
